FAERS Safety Report 6283418-4 (Version None)
Quarter: 2009Q4

REPORT INFORMATION
  Report Type: 
  Country: None (occurrence: None)
  Receive Date: 20090721
  Receipt Date: 20090721
  Transmission Date: 20100525
  Serious: No
  Sender: FDA-Public Use
  Company Number: None

PATIENT
  Age: 60 Year
  Sex: Female

DRUGS (1)
  1. VALTREX [Suspect]
     Dosage: 1 GM PO TID
     Route: 048
     Dates: start: 20070409, end: 20070416

REACTIONS (5)
  - ANTINUCLEAR ANTIBODY POSITIVE [None]
  - BILIARY TRACT DISORDER [None]
  - CHOLANGITIS [None]
  - HEPATITIS [None]
  - LIVER INJURY [None]
